FAERS Safety Report 5093388-2 (Version None)
Quarter: 2006Q3

REPORT INFORMATION
  Report Type: 
  Country: None (occurrence: None)
  Receive Date: 20060823
  Receipt Date: 20060809
  Transmission Date: 20061208
  Serious: Yes (Other)
  Sender: FDA-Public Use
  Company Number: HQWYE360111AUG06

PATIENT
  Age: 12 Year
  Sex: Male

DRUGS (3)
  1. REFACTO [Suspect]
     Indication: TRAUMATIC HAEMORRHAGE
     Dosage: SEE IMAGE
     Route: 042
     Dates: start: 20060328, end: 20060328
  2. REFACTO [Suspect]
     Indication: TRAUMATIC HAEMORRHAGE
     Dosage: SEE IMAGE
     Route: 042
     Dates: start: 20060329, end: 20060329
  3. REFACTO [Suspect]
     Indication: TRAUMATIC HAEMORRHAGE
     Dosage: SEE IMAGE
     Route: 042
     Dates: start: 20060301

REACTIONS (1)
  - FACTOR VIII INHIBITION [None]
